FAERS Safety Report 18138774 (Version 2)
Quarter: 2020Q3

REPORT INFORMATION
  Report Type: Spontaneous
  Country: JP (occurrence: JP)
  Receive Date: 20200812
  Receipt Date: 20200924
  Transmission Date: 20201103
  Serious: Yes (Other)
  Sender: FDA-Public Use
  Company Number: NVSJ2020JP007631

PATIENT
  Age: 84 Year
  Sex: Female
  Weight: 55 kg

DRUGS (5)
  1. TELMISARTAN. [Concomitant]
     Active Substance: TELMISARTAN
     Indication: HYPERTENSION
     Dosage: 20 MG, QD
     Route: 048
     Dates: start: 20190830
  2. ROSUVASTATIN. [Concomitant]
     Active Substance: ROSUVASTATIN
     Indication: DYSLIPIDAEMIA
     Dosage: 2.5 MG, QD
     Route: 048
     Dates: start: 20190830
  3. EQUMET [Suspect]
     Active Substance: METFORMIN HYDROCHLORIDE\VILDAGLIPTIN
     Indication: TYPE 2 DIABETES MELLITUS
     Dosage: QD, METFORMIN HYDROCHLORIDE 250MG/ VILDAGLIPTIN 50MG
     Route: 048
     Dates: start: 20191003, end: 20200630
  4. GLIMEPIRIDE. [Concomitant]
     Active Substance: GLIMEPIRIDE
     Indication: TYPE 2 DIABETES MELLITUS
     Dosage: 0.5 MG, QD
     Route: 048
     Dates: start: 20190830
  5. AMLODIPINE [Concomitant]
     Active Substance: AMLODIPINE BESYLATE
     Indication: HYPERTENSION
     Dosage: 5 MG, QD
     Route: 048
     Dates: start: 20191130

REACTIONS (2)
  - Pemphigoid [Recovering/Resolving]
  - Rash [Unknown]

NARRATIVE: CASE EVENT DATE: 202002
